FAERS Safety Report 5468165-0 (Version None)
Quarter: 2007Q3

REPORT INFORMATION
  Report Type: 
  Country: None (occurrence: None)
  Receive Date: 20070926
  Receipt Date: 20070913
  Transmission Date: 20080115
  Serious: Yes (Disabling, Other)
  Sender: FDA-Public Use
  Company Number: US-ELI_LILLY_AND_COMPANY-US200709002903

PATIENT
  Age: 71 Year
  Sex: Female

DRUGS (1)
  1. FORTEO [Suspect]
     Dosage: UNK, DAILY (1/D)

REACTIONS (7)
  - BACK PAIN [None]
  - KNEE ARTHROPLASTY [None]
  - NEURALGIA [None]
  - OSTEOPOROTIC FRACTURE [None]
  - PELVIC FRACTURE [None]
  - POST PROCEDURAL COMPLICATION [None]
  - VERTEBROPLASTY [None]
